FAERS Safety Report 5854722-6 (Version None)
Quarter: 2008Q3

REPORT INFORMATION
  Report Type: 
  Country: None (occurrence: None)
  Receive Date: 20080822
  Receipt Date: 20080808
  Transmission Date: 20090109
  Serious: Yes (Death)
  Sender: FDA-Public Use
  Company Number: CH-GENENTECH-266475

PATIENT
  Age: 83 Year
  Sex: Female

DRUGS (2)
  1. MABTHERA [Suspect]
     Indication: NON-HODGKIN'S LYMPHOMA
     Dosage: 600 MG, UNKNOWN
     Route: 041
     Dates: start: 20080410
  2. ORAL ANTICOAGULANTS [Concomitant]
     Indication: PULMONARY EMBOLISM

REACTIONS (2)
  - DISSEMINATED INTRAVASCULAR COAGULATION [None]
  - SHOCK [None]
